FAERS Safety Report 23151040 (Version 3)
Quarter: 2023Q4

REPORT INFORMATION
  Report Type: Spontaneous
  Country: JP (occurrence: JP)
  Receive Date: 20231106
  Receipt Date: 20231225
  Transmission Date: 20240109
  Serious: Yes (Hospitalization, Other)
  Sender: FDA-Public Use
  Company Number: JP-BRISTOL-MYERS SQUIBB COMPANY-2023-154892

PATIENT
  Age: 4 Decade
  Sex: Male

DRUGS (8)
  1. YERVOY [Suspect]
     Active Substance: IPILIMUMAB
     Indication: Malignant melanoma
     Route: 041
     Dates: start: 202301
  2. YERVOY [Suspect]
     Active Substance: IPILIMUMAB
     Route: 041
     Dates: start: 202302
  3. YERVOY [Suspect]
     Active Substance: IPILIMUMAB
     Route: 041
     Dates: start: 202303
  4. OPDIVO [Suspect]
     Active Substance: NIVOLUMAB
     Indication: Malignant melanoma
     Dates: start: 202301
  5. OPDIVO [Suspect]
     Active Substance: NIVOLUMAB
     Dates: start: 202302
  6. OPDIVO [Suspect]
     Active Substance: NIVOLUMAB
     Dates: start: 202303
  7. ENCORAFENIB [Concomitant]
     Active Substance: ENCORAFENIB
     Indication: Malignant melanoma
     Dates: start: 202303
  8. BINIMETINIB [Concomitant]
     Active Substance: BINIMETINIB
     Indication: Malignant melanoma
     Dates: start: 202303

REACTIONS (4)
  - Liver disorder [Recovering/Resolving]
  - Hair colour changes [Unknown]
  - Malignant neoplasm progression [Unknown]
  - Dizziness [Recovered/Resolved]

NARRATIVE: CASE EVENT DATE: 20230201
